FAERS Safety Report 8138356-9 (Version None)
Quarter: 2012Q1

REPORT INFORMATION
  Report Type: 
  Country: None (occurrence: None)
  Receive Date: 20120215
  Receipt Date: 20120209
  Transmission Date: 20120608
  Serious: Yes (Other)
  Sender: FDA-Public Use
  Company Number: US-JNJFOC-20120205799

PATIENT
  Sex: Male

DRUGS (2)
  1. SUDAFED 12 HOUR [Suspect]
     Route: 048
  2. SUDAFED 12 HOUR [Suspect]
     Indication: NASAL CONGESTION
     Route: 048

REACTIONS (3)
  - RENAL DISORDER [None]
  - RENAL IMPAIRMENT [None]
  - DRUG HYPERSENSITIVITY [None]
